FAERS Safety Report 16233738 (Version 1)
Quarter: 2019Q2

REPORT INFORMATION
  Report Type: Spontaneous
  Country: US (occurrence: US)
  Receive Date: 20190423
  Receipt Date: 20190423
  Transmission Date: 20190711
  Serious: Yes (Other)
  Sender: FDA-Public Use
  Company Number: None

PATIENT
  Age: 69 Year
  Sex: Female
  Weight: 58.5 kg

DRUGS (3)
  1. TRIAMCINOLONE ACETONIDE TOPICAL OINTMENT [Suspect]
     Active Substance: TRIAMCINOLONE ACETONIDE
     Indication: ATROPHIC VULVOVAGINITIS
     Dosage: ?          QUANTITY:1 GRAM;?
     Route: 061
     Dates: start: 20190327, end: 20190422
  2. VITAMIN D3 [Concomitant]
     Active Substance: CHOLECALCIFEROL
  3. VITAMIN B12 [Concomitant]
     Active Substance: CYANOCOBALAMIN

REACTIONS (1)
  - Vulvovaginal burning sensation [None]

NARRATIVE: CASE EVENT DATE: 20190422
